FAERS Safety Report 5898255-X (Version None)
Quarter: 2008Q3

REPORT INFORMATION
  Report Type: 
  Country: None (occurrence: None)
  Receive Date: 20080925
  Receipt Date: 20070820
  Transmission Date: 20090109
  Serious: No
  Sender: FDA-Public Use
  Company Number: A0668407A

PATIENT
  Age: 28 Year
  Sex: Male

DRUGS (1)
  1. WELLBUTRIN XL [Suspect]
     Indication: DEPRESSION
     Dosage: 300MG PER DAY
     Route: 048
     Dates: start: 20060701

REACTIONS (4)
  - DECREASED INTEREST [None]
  - DISSOCIATION [None]
  - HYPOAESTHESIA [None]
  - MEDICATION ERROR [None]
